FAERS Safety Report 6666596-4 (Version None)
Quarter: 2010Q2

REPORT INFORMATION
  Report Type: 
  Country: None (occurrence: None)
  Receive Date: 20100404
  Receipt Date: 20100331
  Transmission Date: 20101027
  Serious: Yes (Other)
  Sender: FDA-Public Use
  Company Number: US-BRISTOL-MYERS SQUIBB COMPANY-15016116

PATIENT
  Age: 74 Year
  Sex: Male
  Weight: 85 kg

DRUGS (8)
  1. ONGLYZA [Suspect]
     Indication: DIABETES MELLITUS
     Dosage: STARTED 40 DAYS AGO
     Route: 048
  2. IRON [Suspect]
  3. METFORMIN HCL [Concomitant]
     Route: 048
  4. GLIPIZIDE [Concomitant]
     Route: 048
  5. LISINOPRIL [Concomitant]
  6. LEVOTHYROXINE SODIUM [Concomitant]
  7. SIMVASTATIN [Concomitant]
  8. TERAZOSIN HCL [Concomitant]

REACTIONS (1)
  - HAEMATOCHEZIA [None]
